FAERS Safety Report 4401893-4 (Version None)
Quarter: 2004Q3

REPORT INFORMATION
  Report Type: 
  Country: None (occurrence: None)
  Receive Date: 20040719
  Receipt Date: 20040719
  Transmission Date: 20050211
  Serious: Yes (Other)
  Sender: FDA-Public Use
  Company Number: None

PATIENT
  Age: 13 Year
  Sex: Female

DRUGS (1)
  1. ETHYL CHLORIDE [Suspect]
     Dosage: SPRAY

REACTIONS (3)
  - BURNS FIRST DEGREE [None]
  - EAR DISORDER [None]
  - MEDICATION ERROR [None]
